FAERS Safety Report 15119453 (Version 1)
Quarter: 2018Q3

REPORT INFORMATION
  Report Type: Spontaneous
  Country: US (occurrence: US)
  Receive Date: 20180709
  Receipt Date: 20180709
  Transmission Date: 20181010
  Serious: Yes (Hospitalization)
  Sender: FDA-Public Use
  Company Number: US-OCTA-GAM00518US

PATIENT
  Age: 30 Year
  Sex: Female
  Weight: 78.93 kg

DRUGS (1)
  1. OCTAGAM IMMUNE GLOBULIN (HUMAN) [Suspect]
     Active Substance: HUMAN IMMUNOGLOBULIN G
     Indication: MYASTHENIA GRAVIS
     Dosage: EVERY 3?4 WEEKS
     Route: 042
     Dates: start: 20171218, end: 20171218

REACTIONS (2)
  - Swelling [Unknown]
  - Rash [Unknown]

NARRATIVE: CASE EVENT DATE: 20171218
